FAERS Safety Report 10610808 (Version 2)
Quarter: 2015Q1

REPORT INFORMATION
  Report Type: Spontaneous
  Country: US (occurrence: US)
  Receive Date: 20141126
  Receipt Date: 20150116
  Transmission Date: 20150720
  Serious: Yes (Hospitalization)
  Sender: FDA-Public Use
  Company Number: US-MALLINCKRODT-T201401151

PATIENT
  Sex: Male

DRUGS (3)
  1. GABLOFEN [Suspect]
     Active Substance: BACLOFEN
     Indication: MUSCLE SPASTICITY
     Dosage: 304.6 MCG/DAY
     Route: 037
  2. GABLOFEN [Suspect]
     Active Substance: BACLOFEN
     Dosage: 250 MCG/DAY
     Route: 037
  3. GABLOFEN [Suspect]
     Active Substance: BACLOFEN
     Dosage: 377.6 MCG/DAY, SIMPLE CONTINUOUS
     Route: 037

REACTIONS (7)
  - Headache [Recovered/Resolved]
  - Muscle spasticity [Recovered/Resolved]
  - Implant site extravasation [Unknown]
  - Mass [Unknown]
  - Pyrexia [Recovered/Resolved]
  - Cerebrospinal fluid leakage [Recovered/Resolved]
  - Arthralgia [Unknown]
